FAERS Safety Report 14529503 (Version 1)
Quarter: 2018Q1

REPORT INFORMATION
  Report Type: Spontaneous
  Country: US (occurrence: US)
  Receive Date: 20180213
  Receipt Date: 20180213
  Transmission Date: 20180509
  Serious: No
  Sender: FDA-Public Use
  Company Number: None

PATIENT
  Age: 64 Year
  Sex: Female

DRUGS (1)
  1. TEMOZOLOMIDE CAP 100MG [Suspect]
     Active Substance: TEMOZOLOMIDE

REACTIONS (5)
  - Weight decreased [None]
  - Seizure [None]
  - Decreased appetite [None]
  - Alopecia [None]
  - Fatigue [None]

NARRATIVE: CASE EVENT DATE: 20180213
